FAERS Safety Report 11840961 (Version 2)
Quarter: 2015Q4

REPORT INFORMATION
  Report Type: Spontaneous
  Country: US (occurrence: US)
  Receive Date: 20151216
  Receipt Date: 20151218
  Transmission Date: 20160305
  Serious: No
  Sender: FDA-Public Use
  Company Number: US-BAYER-2015-489783

PATIENT
  Age: 9 Year
  Sex: Female
  Weight: 30.84 kg

DRUGS (2)
  1. FOCALIN [Concomitant]
     Active Substance: DEXMETHYLPHENIDATE HYDROCHLORIDE
     Dosage: UNK
  2. CHILDREN CLARITIN ALLERGY [Suspect]
     Active Substance: LORATADINE
     Dosage: UNK
     Route: 048

REACTIONS (1)
  - Accidental exposure to product by child [None]
